FAERS Safety Report 21887150 (Version 1)
Quarter: 2023Q1

REPORT INFORMATION
  Report Type: Report from Study
  Country: US (occurrence: US)
  Receive Date: 20230119
  Receipt Date: 20230119
  Transmission Date: 20230417
  Serious: No
  Sender: FDA-Public Use
  Company Number: US-ABBVIE-22K-163-4374459-00

PATIENT
  Age: 30 Year
  Sex: Male

DRUGS (2)
  1. HUMIRA [Suspect]
     Active Substance: ADALIMUMAB
     Indication: Crohn^s disease
     Dosage: DAY 1
     Route: 058
     Dates: start: 20211124, end: 20211124
  2. HUMIRA [Suspect]
     Active Substance: ADALIMUMAB
     Dosage: DAY 15
     Route: 058
     Dates: start: 20211209, end: 20211209

REACTIONS (5)
  - Gastrointestinal sounds abnormal [Unknown]
  - Arthralgia [Unknown]
  - Anxiety [Unknown]
  - Stress [Unknown]
  - Depressed mood [Unknown]

NARRATIVE: CASE EVENT DATE: 20221101
